FAERS Safety Report 8987477 (Version 9)
Quarter: 2014Q2

REPORT INFORMATION
  Report Type: Report from Study
  Country: CA (occurrence: CA)
  Receive Date: 20121227
  Receipt Date: 20140403
  Transmission Date: 20141212
  Serious: Yes (Hospitalization, Other)
  Sender: FDA-Public Use
  Company Number: CA-ROCHE-1146987

PATIENT
  Age: 82 Year
  Sex: Female
  Weight: 70 kg

DRUGS (14)
  1. ACTEMRA [Suspect]
     Indication: RHEUMATOID ARTHRITIS
     Route: 042
     Dates: start: 20110104
  2. ACTEMRA [Suspect]
     Route: 042
     Dates: start: 20110202
  3. WARFARIN [Concomitant]
  4. TYLENOL [Concomitant]
  5. LEVOTHYROXINE [Concomitant]
  6. ATENOLOL [Concomitant]
  7. FOLIC ACID [Concomitant]
  8. CLONAZEPAM [Concomitant]
  9. OXAZEPAM [Concomitant]
  10. GABAPENTIN [Concomitant]
  11. SELENIUM [Concomitant]
  12. VITAMIN C [Concomitant]
  13. VITAMIN B COMPLEX [Concomitant]
  14. ENBREL [Concomitant]
     Route: 065
     Dates: end: 20101117

REACTIONS (7)
  - Hip fracture [Unknown]
  - Cellulitis [Not Recovered/Not Resolved]
  - Arthropathy [Unknown]
  - Influenza [Not Recovered/Not Resolved]
  - Incision site erythema [Not Recovered/Not Resolved]
  - Localised infection [Recovered/Resolved]
  - Hip surgery [Unknown]
